FAERS Safety Report 20919692 (Version 2)
Quarter: 2022Q2

REPORT INFORMATION
  Report Type: Spontaneous
  Country: US (occurrence: US)
  Receive Date: 20220606
  Receipt Date: 20220609
  Transmission Date: 20220720
  Serious: No
  Sender: FDA-Public Use
  Company Number: US-PFIZER INC-202200789024

PATIENT
  Age: 64 Year
  Sex: Female
  Weight: 94.35 kg

DRUGS (2)
  1. PAXLOVID [Suspect]
     Active Substance: NIRMATRELVIR\RITONAVIR
     Indication: COVID-19 treatment
     Dosage: UNK
     Dates: start: 20220526, end: 20220530
  2. VITAMIN D NOS [Concomitant]
     Active Substance: VITAMIN D NOS
     Dosage: UNK

REACTIONS (5)
  - Depression [Unknown]
  - Faeces discoloured [Unknown]
  - Weight decreased [Unknown]
  - Productive cough [Unknown]
  - Headache [Unknown]

NARRATIVE: CASE EVENT DATE: 20220101
